FAERS Safety Report 8995910 (Version 1)
Quarter: 2013Q1

REPORT INFORMATION
  Report Type: Spontaneous
  Country: GB (occurrence: GB)
  Receive Date: 20130103
  Receipt Date: 20130103
  Transmission Date: 20140127
  Serious: Yes (Hospitalization, Disabling, Other)
  Sender: FDA-Public Use
  Company Number: GB-TEVA-378234ISR

PATIENT
  Age: 20 Year
  Sex: Female

DRUGS (4)
  1. OFLOXACIN [Suspect]
     Indication: INFECTION
     Route: 048
     Dates: start: 200712, end: 200712
  2. ERYTHROMYCIN [Concomitant]
  3. PARACETAMOL [Concomitant]
  4. DEPO-PROVERA [Concomitant]

REACTIONS (5)
  - Arthralgia [Recovered/Resolved]
  - Rash [Recovered/Resolved]
  - Crohn^s disease [Not Recovered/Not Resolved]
  - Anal abscess [Unknown]
  - Cyst [Unknown]
